FAERS Safety Report 8312278-2 (Version None)
Quarter: 2012Q2

REPORT INFORMATION
  Report Type: 
  Country: None (occurrence: None)
  Receive Date: 20120425
  Receipt Date: 20120419
  Transmission Date: 20120825
  Serious: Yes (Other)
  Sender: FDA-Public Use
  Company Number: BR-PFIZER INC-2012098604

PATIENT
  Age: 57 Year
  Sex: Female

DRUGS (3)
  1. LYRICA [Suspect]
     Indication: FIBROMYALGIA
     Dosage: 1 CAPSULE OF 75MG AND 1 CAPSULE OF 150MG, UNSPECIFIED FREQUENCY
     Route: 048
     Dates: start: 20100101
  2. CYMBALTA [Concomitant]
     Dosage: UNK
  3. MIOSAN [Concomitant]
     Dosage: UNK

REACTIONS (5)
  - FALL [None]
  - PAIN [None]
  - SPINAL FRACTURE [None]
  - DRUG INEFFECTIVE [None]
  - ANAPHYLACTIC SHOCK [None]
